FAERS Safety Report 6089633-7 (Version None)
Quarter: 2009Q1

REPORT INFORMATION
  Report Type: 
  Country: None (occurrence: None)
  Receive Date: 20090224
  Receipt Date: 20090219
  Transmission Date: 20090719
  Serious: Yes (Hospitalization)
  Sender: FDA-Public Use
  Company Number: DE-ABBOTT-09P-062-0558265-00

PATIENT
  Sex: Female

DRUGS (15)
  1. HUMIRA [Suspect]
     Indication: RHEUMATOID ARTHRITIS
     Dates: start: 20080806
  2. CARVEDILOL [Concomitant]
     Indication: DRUG USE FOR UNKNOWN INDICATION
  3. COAPROVEL [Concomitant]
     Indication: DRUG USE FOR UNKNOWN INDICATION
  4. NIFEDIPINE [Concomitant]
     Indication: DRUG USE FOR UNKNOWN INDICATION
  5. ASPIRIN [Concomitant]
     Indication: DRUG USE FOR UNKNOWN INDICATION
  6. LEVOTHYROXINE SODIUM [Concomitant]
     Indication: DRUG USE FOR UNKNOWN INDICATION
  7. XALATHAN [Concomitant]
     Indication: DRUG USE FOR UNKNOWN INDICATION
  8. SPIRIVA [Concomitant]
     Indication: DRUG USE FOR UNKNOWN INDICATION
  9. SIMVASTATIN [Concomitant]
     Indication: DRUG USE FOR UNKNOWN INDICATION
  10. ZOLOFT [Concomitant]
     Indication: DRUG USE FOR UNKNOWN INDICATION
  11. TEBONIN [Concomitant]
     Indication: DRUG USE FOR UNKNOWN INDICATION
  12. VITALUX [Concomitant]
     Indication: DRUG USE FOR UNKNOWN INDICATION
  13. PANTOZOL [Concomitant]
     Indication: DRUG USE FOR UNKNOWN INDICATION
  14. VENTOLER [Concomitant]
     Indication: DRUG USE FOR UNKNOWN INDICATION
  15. CIPROFLOXACIN HCL [Concomitant]
     Indication: DRUG USE FOR UNKNOWN INDICATION

REACTIONS (1)
  - AORTIC SURGERY [None]
